FAERS Safety Report 18891194 (Version 1)
Quarter: 2021Q1

REPORT INFORMATION
  Report Type: Spontaneous
  Country: US (occurrence: US)
  Receive Date: 20210215
  Receipt Date: 20210215
  Transmission Date: 20210420
  Serious: No
  Sender: FDA-Public Use
  Company Number: US-009507513-2102USA003354

PATIENT
  Sex: Female

DRUGS (1)
  1. NUVARING [Suspect]
     Active Substance: ETHINYL ESTRADIOL\ETONOGESTREL
     Dosage: 1 RING EVERY 3 WEEKS
     Route: 067

REACTIONS (4)
  - Intentional medical device removal by patient [Unknown]
  - Metrorrhagia [Unknown]
  - Incorrect product administration duration [Unknown]
  - Product storage error [Unknown]
